FAERS Safety Report 9776523 (Version 3)
Quarter: 2014Q1

REPORT INFORMATION
  Report Type: Spontaneous
  Country: US (occurrence: US)
  Receive Date: 20131220
  Receipt Date: 20140331
  Transmission Date: 20141002
  Serious: No
  Sender: FDA-Public Use
  Company Number: US-GILEAD-2013-0090193

PATIENT
  Sex: Male

DRUGS (24)
  1. LETAIRIS [Suspect]
     Indication: PULMONARY HYPERTENSION
     Dosage: 5 MG, QD
     Dates: start: 20130813, end: 20140315
  2. LETAIRIS [Suspect]
     Indication: HIV INFECTION
     Dosage: 2.5 MG, QD
     Route: 048
     Dates: start: 20130820
  3. ALDACTONE                          /00006201/ [Concomitant]
  4. AMBIEN [Concomitant]
  5. AZITHROMYCIN [Concomitant]
  6. BUPROPION HCL ER [Concomitant]
  7. CENTRUM                            /07499601/ [Concomitant]
  8. CLARITIN                           /00917501/ [Concomitant]
  9. DIAZEPAM [Concomitant]
  10. FEXOFENADINE [Concomitant]
  11. FUROSEMIDE [Concomitant]
  12. ISENTRESS [Concomitant]
  13. LISINOPRIL [Concomitant]
  14. NEXIUM                             /01479302/ [Concomitant]
  15. OMEGA 3                            /01334101/ [Concomitant]
  16. OXYCODONE HCL [Concomitant]
  17. RELPAX [Concomitant]
  18. REMERON [Concomitant]
  19. SILDENAFIL CITRATE [Concomitant]
  20. TESTIM [Concomitant]
  21. TOPIRAMATE [Concomitant]
  22. TRUVADA [Concomitant]
  23. VENTAVIS [Concomitant]
  24. WARFARIN [Concomitant]

REACTIONS (1)
  - Hepatic enzyme increased [Unknown]
